FAERS Safety Report 9988016 (Version 1)
Quarter: 2014Q1

REPORT INFORMATION
  Report Type: Spontaneous
  Country: US (occurrence: US)
  Receive Date: 20140307
  Receipt Date: 20140307
  Transmission Date: 20141002
  Serious: Yes (Life-Threatening)
  Sender: FDA-Public Use
  Company Number: US-ASTRAZENECA-2014SE16254

PATIENT
  Age: 33 Year
  Sex: Female

DRUGS (7)
  1. SEROQUEL [Suspect]
     Dosage: 15 TABLETS ONCE
     Route: 048
  2. FETZIMA [Suspect]
     Indication: DEPRESSION
     Route: 048
  3. FETZIMA [Suspect]
     Indication: DEPRESSION
     Route: 048
  4. HYDROCODONE [Suspect]
     Dosage: 30 TABLETS ONCE
  5. CELEXA [Concomitant]
  6. RISPERDAL [Concomitant]
  7. LAMICTAL [Concomitant]

REACTIONS (3)
  - Overdose [Recovered/Resolved]
  - Suicidal behaviour [Recovered/Resolved]
  - Vomiting [Recovered/Resolved]
